FAERS Safety Report 17354137 (Version 1)
Quarter: 2020Q1

REPORT INFORMATION
  Report Type: Spontaneous
  Country: US (occurrence: US)
  Receive Date: 20200130
  Receipt Date: 20200130
  Transmission Date: 20200409
  Serious: Yes (Hospitalization)
  Sender: FDA-Public Use
  Company Number: None

PATIENT
  Sex: Female

DRUGS (7)
  1. POTASSIMIN [Concomitant]
  2. VITAMIN B-1 [Concomitant]
     Active Substance: THIAMINE HYDROCHLORIDE
  3. CALCITRIOL. [Concomitant]
     Active Substance: CALCITRIOL
  4. LISINOPRIL. [Concomitant]
     Active Substance: LISINOPRIL
  5. STELARA [Suspect]
     Active Substance: USTEKINUMAB
     Indication: CROHN^S DISEASE
     Dosage: ?          OTHER FREQUENCY:Q8WKS;?
     Route: 058
     Dates: start: 20191023
  6. LEVOTHYROXIN [Concomitant]
     Active Substance: LEVOTHYROXINE
  7. VITAMIN D [Concomitant]
     Active Substance: VITAMIN D NOS

REACTIONS (5)
  - Nasopharyngitis [None]
  - Abdominal distension [None]
  - Condition aggravated [None]
  - Pneumonia [None]
  - Oral herpes [None]
